FAERS Safety Report 17075141 (Version 2)
Quarter: 2020Q1

REPORT INFORMATION
  Report Type: Spontaneous
  Country: US (occurrence: US)
  Receive Date: 20191126
  Receipt Date: 20200106
  Transmission Date: 20200409
  Serious: Yes (Other)
  Sender: FDA-Public Use
  Company Number: US-BAYER-2019-213589

PATIENT
  Age: 39 Year
  Sex: Female
  Weight: 88.24 kg

DRUGS (3)
  1. MIRENA [Suspect]
     Active Substance: LEVONORGESTREL
     Indication: MENORRHAGIA
  2. MIRENA [Suspect]
     Active Substance: LEVONORGESTREL
     Indication: CONTRACEPTION
  3. MIRENA [Suspect]
     Active Substance: LEVONORGESTREL
     Indication: CONTRACEPTION
     Dosage: 20 MCG/24HR, CONT
     Route: 015
     Dates: start: 20191105, end: 20191112

REACTIONS (4)
  - Vaginal haemorrhage [None]
  - Device dislocation [Recovered/Resolved]
  - Uterine haemorrhage [None]
  - Procedural anxiety [None]

NARRATIVE: CASE EVENT DATE: 20191105
